FAERS Safety Report 17236358 (Version 1)
Quarter: 2020Q1

REPORT INFORMATION
  Report Type: Spontaneous
  Country: CN (occurrence: CN)
  Receive Date: 20200106
  Receipt Date: 20200106
  Transmission Date: 20200409
  Serious: Yes (Other)
  Sender: FDA-Public Use
  Company Number: CN-PFIZER INC-2019562103

PATIENT
  Age: 4 Year
  Sex: Male
  Weight: 18 kg

DRUGS (1)
  1. METHOTREXATE. [Suspect]
     Active Substance: METHOTREXATE
     Indication: ACUTE LYMPHOCYTIC LEUKAEMIA
     Dosage: 3.6 G, 1X/DAY
     Route: 041
     Dates: start: 20191004, end: 20191006

REACTIONS (6)
  - Anal ulcer [Recovering/Resolving]
  - Anal infection [Recovering/Resolving]
  - Bone marrow failure [Recovering/Resolving]
  - Stomatitis [Recovering/Resolving]
  - Blood count abnormal [Recovering/Resolving]
  - Pyrexia [Recovering/Resolving]

NARRATIVE: CASE EVENT DATE: 20191011
